FAERS Safety Report 10008829 (Version 2)
Quarter: 2014Q1

REPORT INFORMATION
  Report Type: Spontaneous
  Country: US (occurrence: US)
  Receive Date: 20140312
  Receipt Date: 20140312
  Transmission Date: 20141002
  Serious: No
  Sender: FDA-Public Use
  Company Number: US-INCYTE CORPORATION-2012IN000446

PATIENT
  Age: 81 Year
  Sex: Female
  Weight: 57.14 kg

DRUGS (3)
  1. JAKAFI [Suspect]
     Indication: MYELOFIBROSIS
     Dosage: 5 MG, BID
     Route: 048
     Dates: start: 201101, end: 20120417
  2. JAKAFI [Suspect]
     Dosage: 5 MG, BID
     Route: 048
  3. ARANESP [Concomitant]

REACTIONS (9)
  - Epistaxis [Unknown]
  - Splenomegaly [Not Recovered/Not Resolved]
  - Night sweats [Not Recovered/Not Resolved]
  - Decreased appetite [Not Recovered/Not Resolved]
  - Musculoskeletal pain [Not Recovered/Not Resolved]
  - Pain in extremity [Not Recovered/Not Resolved]
  - Cough [Not Recovered/Not Resolved]
  - Platelet count abnormal [Unknown]
  - Platelet count decreased [Not Recovered/Not Resolved]
